FAERS Safety Report 7227718-X (Version None)
Quarter: 2011Q1

REPORT INFORMATION
  Report Type: 
  Country: None (occurrence: None)
  Receive Date: 20110114
  Receipt Date: 20110107
  Transmission Date: 20110831
  Serious: Yes (Other)
  Sender: FDA-Public Use
  Company Number: US-US-EMD SERONO, INC.-7035455

PATIENT
  Sex: Female

DRUGS (1)
  1. REBIF [Suspect]
     Indication: MULTIPLE SCLEROSIS
     Route: 058
     Dates: start: 20091124

REACTIONS (5)
  - MUSCULAR WEAKNESS [None]
  - MEMORY IMPAIRMENT [None]
  - BLOOD TRIGLYCERIDES INCREASED [None]
  - POLLAKIURIA [None]
  - LOSS OF BLADDER SENSATION [None]
